FAERS Safety Report 10763367 (Version 1)
Quarter: 2015Q1

REPORT INFORMATION
  Report Type: Spontaneous
  Country: US (occurrence: US)
  Receive Date: 20150204
  Receipt Date: 20150204
  Transmission Date: 20150721
  Serious: Yes (Hospitalization)
  Sender: FDA-Public Use
  Company Number: US-GLAXOSMITHKLINE-US2015011997

PATIENT
  Sex: Female

DRUGS (10)
  1. VICTOZA [Concomitant]
     Active Substance: LIRAGLUTIDE
  2. ATACAND [Concomitant]
     Active Substance: CANDESARTAN CILEXETIL
  3. METFORMIN [Concomitant]
     Active Substance: METFORMIN HYDROCHLORIDE
  4. IMIPRAMINE [Concomitant]
     Active Substance: IMIPRAMINE
  5. ADVAIR DISKUS [Suspect]
     Active Substance: FLUTICASONE PROPIONATE\SALMETEROL XINAFOATE
     Indication: ASTHMA
     Dosage: 100/50
     Route: 055
     Dates: start: 2009
  6. SERTRALINE [Concomitant]
     Active Substance: SERTRALINE HYDROCHLORIDE
  7. TOVIAZ [Concomitant]
     Active Substance: FESOTERODINE FUMARATE
  8. ATORVASTATIN [Concomitant]
     Active Substance: ATORVASTATIN
  9. ALBUTEROL SULFATE. [Concomitant]
     Active Substance: ALBUTEROL SULFATE
  10. INDOMETHACIN. [Concomitant]
     Active Substance: INDOMETHACIN

REACTIONS (8)
  - Chronic sinusitis [Recovered/Resolved]
  - Hypertension [Recovering/Resolving]
  - Blood glucose increased [Recovering/Resolving]
  - Tremor [Unknown]
  - Unable to afford prescribed medication [Unknown]
  - Asthma [Recovered/Resolved]
  - Blood cholesterol increased [Recovering/Resolving]
  - Therapy cessation [Unknown]

NARRATIVE: CASE EVENT DATE: 2010
